FAERS Safety Report 4988599-8 (Version None)
Quarter: 2006Q2

REPORT INFORMATION
  Report Type: 
  Country: None (occurrence: None)
  Receive Date: 20060426
  Receipt Date: 20060406
  Transmission Date: 20061013
  Serious: No
  Sender: FDA-Public Use
  Company Number: JP200511003195

PATIENT
  Age: 67 Year
  Sex: Female

DRUGS (2)
  1. RALOXIFENE HCL [Suspect]
     Indication: OSTEOPOROSIS POSTMENOPAUSAL
     Dosage: 60 MG, DAILY (1/D), ORAL
     Route: 048
     Dates: start: 20050307, end: 20050321
  2. SIMVASTATIN [Concomitant]

REACTIONS (1)
  - INTESTINAL POLYPECTOMY [None]
